FAERS Safety Report 4410026-X (Version None)
Quarter: 2004Q3

REPORT INFORMATION
  Report Type: 
  Country: None (occurrence: None)
  Receive Date: 20040726
  Receipt Date: 20040715
  Transmission Date: 20050211
  Serious: No
  Sender: FDA-Public Use
  Company Number: 04H-062-0253229-00

PATIENT
  Age: 81 Year
  Sex: Female

DRUGS (3)
  1. HEPARIN SODIUM [Suspect]
     Indication: DEEP VEIN THROMBOSIS
     Dosage: SUBCUTANEOUS
     Route: 058
  2. HEPARIN SODIUM [Suspect]
     Indication: KNEE ARTHROPLASTY
     Dosage: SUBCUTANEOUS
     Route: 058
  3. HEPARIN SODIUM [Suspect]
     Indication: THROMBOSIS PROPHYLAXIS
     Dosage: SUBCUTANEOUS
     Route: 058

REACTIONS (7)
  - CONFUSIONAL STATE [None]
  - DEEP VEIN THROMBOSIS [None]
  - DISORIENTATION [None]
  - DISTURBANCE IN ATTENTION [None]
  - HEPARIN-INDUCED THROMBOCYTOPENIA [None]
  - MEMORY IMPAIRMENT [None]
  - VISUAL DISTURBANCE [None]
